FAERS Safety Report 7598413-2 (Version None)
Quarter: 2011Q3

REPORT INFORMATION
  Report Type: 
  Country: None (occurrence: None)
  Receive Date: 20110708
  Receipt Date: 20110630
  Transmission Date: 20111222
  Serious: Yes (Hospitalization)
  Sender: FDA-Public Use
  Company Number: US-ABBOTT-11P-163-0835899-00

PATIENT
  Sex: Female
  Weight: 127 kg

DRUGS (10)
  1. DIPHENHYDRAMINE HCL [Concomitant]
     Indication: AGITATION
  2. INVEGE [Concomitant]
     Indication: SCHIZOPHRENIA
  3. METOPROLOL TARTRATE [Concomitant]
     Indication: HYPERTENSION
  4. LISINOPRIL [Concomitant]
     Indication: HYPERTENSION
  5. CLARITIN [Concomitant]
     Indication: HYPERSENSITIVITY
  6. SYNTHROID [Concomitant]
     Indication: HYPOTHYROIDISM
  7. DEPAKOTE ER [Suspect]
     Indication: BIPOLAR DISORDER
     Route: 048
     Dates: start: 20090101
  8. JANUVIA [Concomitant]
     Indication: DIABETES MELLITUS
  9. AMANTADINE HCL [Concomitant]
     Indication: EXTRAPYRAMIDAL DISORDER
  10. CLOZAPINE [Concomitant]
     Indication: SCHIZOPHRENIA

REACTIONS (4)
  - ABDOMINAL PAIN [None]
  - ABNORMAL BEHAVIOUR [None]
  - HEPATIC STEATOSIS [None]
  - TREATMENT NONCOMPLIANCE [None]
